FAERS Safety Report 4341645-7 (Version None)
Quarter: 2004Q2

REPORT INFORMATION
  Report Type: 
  Country: None (occurrence: None)
  Receive Date: 20040415
  Receipt Date: 20040406
  Transmission Date: 20050107
  Serious: Yes (Other)
  Sender: FDA-Public Use
  Company Number: 2003-06-3494

PATIENT
  Age: 55 Year
  Sex: Female

DRUGS (11)
  1. PEG-INTRON [Suspect]
     Indication: HEPATITIS C
     Dosage: 96 MCG QWK SUBCUTANEOUS
     Route: 058
     Dates: start: 20020915, end: 20030809
  2. REBETOL [Suspect]
     Indication: HEPATITIS C
     Dosage: 1000 MG QD ORAL
     Route: 048
     Dates: start: 20020915, end: 20030809
  3. AMBIEN [Concomitant]
  4. CALCIUM [Concomitant]
  5. ATENOLOL [Concomitant]
  6. KLONOPIN [Concomitant]
  7. ZOLOFT [Concomitant]
  8. OXYCODONE [Concomitant]
  9. MULTI-VITAMINS [Concomitant]
  10. ULTRAM [Concomitant]
  11. POTASSIUM SUPPLEMENT (NOS) [Concomitant]

REACTIONS (11)
  - ARTHRALGIA [None]
  - CEREBROVASCULAR ACCIDENT [None]
  - EPISTAXIS [None]
  - LOSS OF CONSCIOUSNESS [None]
  - MYALGIA [None]
  - NAUSEA [None]
  - PAIN IN EXTREMITY [None]
  - THINKING ABNORMAL [None]
  - URINARY INCONTINENCE [None]
  - VIRAL LOAD INCREASED [None]
  - WEIGHT INCREASED [None]
